FAERS Safety Report 7107365-0 (Version None)
Quarter: 2010Q4

REPORT INFORMATION
  Report Type: 
  Country: None (occurrence: None)
  Receive Date: 20101111
  Receipt Date: 20101111
  Transmission Date: 20110411
  Serious: Yes (Life-Threatening)
  Sender: FDA-Public Use
  Company Number: None

PATIENT
  Age: 40 Year
  Sex: Male
  Weight: 81.6475 kg

DRUGS (1)
  1. LEVAQUIN [Suspect]
     Indication: SINUSITIS
     Dosage: 1 EVERY DAY PO
     Route: 048
     Dates: start: 20101103, end: 20101107

REACTIONS (11)
  - ANXIETY [None]
  - BLOOD GLUCOSE INCREASED [None]
  - FEELING ABNORMAL [None]
  - HEADACHE [None]
  - JOINT SWELLING [None]
  - MOOD ALTERED [None]
  - MUSCLE TIGHTNESS [None]
  - MYALGIA [None]
  - SWELLING [None]
  - TENDON DISORDER [None]
  - UNEVALUABLE EVENT [None]
